FAERS Safety Report 20923994 (Version 1)
Quarter: 2022Q2

REPORT INFORMATION
  Report Type: Spontaneous
  Country: IN (occurrence: IN)
  Receive Date: 20220607
  Receipt Date: 20220607
  Transmission Date: 20220720
  Serious: Yes (Hospitalization, Other)
  Sender: FDA-Public Use
  Company Number: IN-PFIZER INC-202200754039

PATIENT
  Age: 32 Year
  Sex: Male

DRUGS (2)
  1. METHYLPREDNISOLONE [Suspect]
     Active Substance: METHYLPREDNISOLONE
     Dosage: 32 MG, 2X/DAY(FOR 1 DAY, AND THEN 16MG TWICE DAILY FOR 4 DAYS,SUBSEQUENTLY 8MG TWICE DAILY FOR 2 DAY
     Route: 048
  2. DEXAMETHASONE [Suspect]
     Active Substance: DEXAMETHASONE
     Dosage: 4 MG, 2X/DAY(FOR 5 DAYS)

REACTIONS (3)
  - Rhinocerebral mucormycosis [Unknown]
  - Candida infection [Unknown]
  - Off label use [Unknown]
